FAERS Safety Report 5591113-X (Version None)
Quarter: 2008Q1

REPORT INFORMATION
  Report Type: 
  Country: None (occurrence: None)
  Receive Date: 20080110
  Receipt Date: 20071228
  Transmission Date: 20080703
  Serious: Yes (Other)
  Sender: FDA-Public Use
  Company Number: 2008BI000005

PATIENT
  Age: 64 Year
  Sex: Male
  Weight: 89 kg

DRUGS (13)
  1. AVONEX [Suspect]
     Indication: RELAPSING-REMITTING MULTIPLE SCLEROSIS
     Dosage: 30 UG; QW;
     Dates: start: 20050601
  2. IBUPROFEN [Concomitant]
  3. GABAPENTIN [Concomitant]
  4. SOVENTOL GEL [Concomitant]
  5. CANESTEN BIFONAZOLE [Concomitant]
  6. IBEROGAST TINKTUR [Concomitant]
  7. OLYNTH [Concomitant]
  8. VOLTAREN [Concomitant]
  9. PLANUM KAPSELN [Concomitant]
  10. OMEPRAZOLE [Concomitant]
  11. OXYBUTYNIN CHLORIDE [Concomitant]
  12. TAMSULOSIN HCL [Concomitant]
  13. CELEBREX [Concomitant]

REACTIONS (1)
  - SKIN CANCER [None]
